FAERS Safety Report 11003027 (Version 2)
Quarter: 2017Q1

REPORT INFORMATION
  Report Type: Spontaneous
  Country: US (occurrence: US)
  Receive Date: 20150408
  Receipt Date: 20170223
  Transmission Date: 20170428
  Serious: Yes (Other)
  Sender: FDA-Public Use
  Company Number: US-009507513-1503USA009753

PATIENT
  Age: 61 Year
  Sex: Male

DRUGS (4)
  1. INTEGRILIN [Suspect]
     Active Substance: EPTIFIBATIDE
     Indication: PERCUTANEOUS CORONARY INTERVENTION
  2. HEPARIN [Concomitant]
     Active Substance: HEPARIN SODIUM
     Dosage: UNK
  3. CLOPIDOGREL [Concomitant]
     Active Substance: CLOPIDOGREL BISULFATE
     Dosage: 600 MG, UNK
  4. INTEGRILIN [Suspect]
     Active Substance: EPTIFIBATIDE
     Indication: CORONARY ARTERY STENOSIS
     Dosage: DAILY DOSE UNKNOWN
     Route: 040

REACTIONS (5)
  - Haematoma [Recovering/Resolving]
  - Platelet count increased [Recovering/Resolving]
  - Haemoglobin decreased [Recovering/Resolving]
  - Thrombocytopenia [Recovered/Resolved]
  - Ecchymosis [Recovering/Resolving]
